FAERS Safety Report 5680944-3 (Version None)
Quarter: 2008Q1

REPORT INFORMATION
  Report Type: 
  Country: None (occurrence: None)
  Receive Date: 20080326
  Receipt Date: 20080314
  Transmission Date: 20080703
  Serious: Yes (Disabling, Other)
  Sender: FDA-Public Use
  Company Number: DE-PFIZER INC-2008015829

PATIENT
  Sex: Female
  Weight: 53 kg

DRUGS (1)
  1. CHAMPIX [Suspect]
     Indication: SMOKING CESSATION THERAPY
     Dates: start: 20080101, end: 20080204

REACTIONS (4)
  - ABNORMAL DREAMS [None]
  - ORAL HERPES [None]
  - SLEEP DISORDER [None]
  - VOCAL CORD PARALYSIS [None]
